FAERS Safety Report 5446342-2 (Version None)
Quarter: 2007Q3

REPORT INFORMATION
  Report Type: 
  Country: None (occurrence: None)
  Receive Date: 20070907
  Receipt Date: 20070829
  Transmission Date: 20080115
  Serious: Yes (Other)
  Sender: FDA-Public Use
  Company Number: A0677404A

PATIENT
  Age: 67 Year
  Sex: Female

DRUGS (4)
  1. ADVAIR DISKUS 100/50 [Suspect]
     Indication: ASTHMA
     Route: 055
     Dates: start: 20070601, end: 20070101
  2. FOSAMAX D [Concomitant]
  3. IODINE [Concomitant]
  4. POTASSIUM IODIDE [Concomitant]

REACTIONS (4)
  - CYSTITIS [None]
  - DEAFNESS [None]
  - EAR DISCOMFORT [None]
  - SINUSITIS [None]
